FAERS Safety Report 4555299-8 (Version None)
Quarter: 2005Q1

REPORT INFORMATION
  Report Type: 
  Country: None (occurrence: None)
  Receive Date: 20041227
  Receipt Date: 20040617
  Transmission Date: 20050727
  Serious: No
  Sender: FDA-Public Use
  Company Number: US080562

PATIENT
  Age: 43 Year
  Sex: Male

DRUGS (5)
  1. ARANESP [Suspect]
     Indication: PRE-EXISTING DISEASE
     Dosage: 300 MCG, 1 IN 2 WEEKS
     Dates: start: 20040609
  2. METHOTREXATE [Concomitant]
  3. PREDNISONE [Concomitant]
  4. FOLIC ACID [Concomitant]
  5. IRON [Concomitant]

REACTIONS (4)
  - DEHYDRATION [None]
  - DIARRHOEA [None]
  - INFLUENZA LIKE ILLNESS [None]
  - PYREXIA [None]
